FAERS Safety Report 7720495-5 (Version None)
Quarter: 2011Q3

REPORT INFORMATION
  Report Type: 
  Country: None (occurrence: None)
  Receive Date: 20110825
  Receipt Date: 20110812
  Transmission Date: 20111222
  Serious: Yes (Hospitalization, Other)
  Sender: FDA-Public Use
  Company Number: 2011MA011799

PATIENT
  Age: 31 Year
  Sex: Male
  Weight: 125.0113 kg

DRUGS (12)
  1. PNUEMOCOCCAL 13 [Suspect]
     Indication: IMMUNISATION
     Dosage: .5 ML;IM
     Route: 030
     Dates: start: 20100510, end: 20100510
  2. REYATAZ [Concomitant]
  3. VALIUM [Concomitant]
  4. TRAMADOL HCL [Suspect]
     Indication: ARTHRALGIA
     Dosage: 50 MG;QID;PO
     Route: 048
     Dates: start: 20100914, end: 20100916
  5. TRUVADA [Concomitant]
  6. LORTAB [Concomitant]
  7. LYRICA [Concomitant]
  8. NORVIR [Concomitant]
  9. TRAZODONE HCL [Concomitant]
  10. SEROQUEL [Concomitant]
  11. CELEXA [Concomitant]
  12. COMBIVENT [Concomitant]

REACTIONS (4)
  - DRUG ADMINISTRATION ERROR [None]
  - UPPER LIMB FRACTURE [None]
  - TREATMENT NONCOMPLIANCE [None]
  - CONVULSION [None]
